FAERS Safety Report 6542892-6 (Version None)
Quarter: 2010Q1

REPORT INFORMATION
  Report Type: 
  Country: None (occurrence: None)
  Receive Date: 20100120
  Receipt Date: 20100111
  Transmission Date: 20100710
  Serious: Yes (Hospitalization, Other)
  Sender: FDA-Public Use
  Company Number: US-TEVA-221017USA

PATIENT
  Age: 67 Year
  Sex: Female

DRUGS (1)
  1. FLECAINIDE ACETATE TABLET 50MG,100MG,150MG [Suspect]
     Indication: ATRIAL TACHYCARDIA
     Route: 048

REACTIONS (1)
  - HYPONATRAEMIA [None]
